FAERS Safety Report 6544480-4 (Version None)
Quarter: 2010Q1

REPORT INFORMATION
  Report Type: 
  Country: None (occurrence: None)
  Receive Date: 20100121
  Receipt Date: 20100113
  Transmission Date: 20100710
  Serious: Yes (Other)
  Sender: FDA-Public Use
  Company Number: JP-ROCHE-679371

PATIENT
  Sex: Female

DRUGS (18)
  1. TOCILIZUMAB [Suspect]
     Indication: RHEUMATOID ARTHRITIS
     Route: 041
     Dates: start: 20090903, end: 20090903
  2. TOCILIZUMAB [Suspect]
     Route: 041
     Dates: start: 20091006, end: 20091006
  3. TOCILIZUMAB [Suspect]
     Route: 041
     Dates: start: 20091111, end: 20091111
  4. TOCILIZUMAB [Suspect]
     Route: 041
     Dates: start: 20100113
  5. RHEUMATREX [Concomitant]
     Route: 048
  6. METHOTREXATE [Concomitant]
     Dosage: DOSE FORM: ORAL FORMULATION (NOT OTHERWISE SPECIFIED)
     Route: 048
  7. PREDNISOLONE [Concomitant]
     Dosage: DOSE FORM: ORAL FORMULATION (NOT OTHERWISE SPECIFIED)
     Route: 048
  8. ISCOTIN [Concomitant]
     Route: 048
     Dates: start: 20090805
  9. MAGNESIUM OXIDE [Concomitant]
     Route: 048
     Dates: start: 20091005
  10. BAYLOTENSIN [Concomitant]
     Route: 048
  11. PURSENNID [Concomitant]
     Route: 048
  12. TAKEPRON [Concomitant]
     Route: 048
  13. DEPAS [Concomitant]
     Dosage: DOSE FORM: ORAL FORMULATION (NOT OTHERWISE SPECIFIED)
     Route: 048
  14. DORAL [Concomitant]
     Route: 048
  15. HALCION [Concomitant]
     Route: 048
  16. BAKTAR [Concomitant]
     Route: 048
  17. FOLIAMIN [Concomitant]
     Dosage: DOSE FORM: ORAL FORMULATION (NOT OTHERWISE SPECIFIED)
     Route: 048
  18. MAGLAX [Concomitant]
     Dosage: DOSE FORM: FINE GRANULE
     Route: 048
     Dates: start: 20091006

REACTIONS (1)
  - CEREBRAL HAEMORRHAGE [None]
